FAERS Safety Report 17430784 (Version 3)
Quarter: 2020Q1

REPORT INFORMATION
  Report Type: Spontaneous
  Country: IT (occurrence: IT)
  Receive Date: 20200218
  Receipt Date: 20200324
  Transmission Date: 20200409
  Serious: Yes (Life-Threatening, Hospitalization, Other)
  Sender: FDA-Public Use
  Company Number: IT-MYLANLABS-2020M1017633

PATIENT
  Age: 16 Year
  Sex: Male
  Weight: 50 kg

DRUGS (12)
  1. REMIFENTANIL HYDROCHLORIDE. [Concomitant]
     Active Substance: REMIFENTANIL HYDROCHLORIDE
     Indication: ENDOTRACHEAL INTUBATION
     Dosage: 0.25 MICROGRAM/KILOGRAM,0.25?0.125 MCG/KG/MIN
     Route: 042
     Dates: start: 20190222, end: 20190222
  2. PROPOFOL. [Concomitant]
     Active Substance: PROPOFOL
     Indication: ENDOTRACHEAL INTUBATION
  3. SEVOFLURANE. [Concomitant]
     Active Substance: SEVOFLURANE
     Indication: MAINTENANCE OF ANAESTHESIA
     Dosage: 2 PERCENT (PERCENT FOR 20 MIN; ROUTE OF ADMINISTRATION:EV)
     Dates: start: 20190222, end: 20190222
  4. BRIDION [Suspect]
     Active Substance: SUGAMMADEX
     Indication: GENERAL ANAESTHESIA
     Dosage: 100 MILLIGRAM, TOTAL (100 MG, ONE DOSE;ROUTE OF ADMINISTRATION:EV)
     Route: 042
     Dates: start: 20190222, end: 20190222
  5. ROCURONIUM BROMIDE. [Suspect]
     Active Substance: ROCURONIUM BROMIDE
     Indication: ENDOTRACHEAL INTUBATION
     Dosage: 15 MILLIGRAM, TOTAL (15MG, ONE DOSE; ROUTE OF ADMINISTRATION:EV)
     Route: 042
     Dates: start: 20190222, end: 20190222
  6. SEVOFLURANE. [Suspect]
     Active Substance: SEVOFLURANE
     Indication: MAINTENANCE OF ANAESTHESIA
     Dosage: 2 PERCENT, INHALATION
     Route: 055
     Dates: start: 20190222, end: 20190222
  7. REMIFENTANIL HYDROCHLORIDE. [Concomitant]
     Active Substance: REMIFENTANIL HYDROCHLORIDE
     Indication: MAINTENANCE OF ANAESTHESIA
     Dosage: UNK
  8. PROPOFOL. [Concomitant]
     Active Substance: PROPOFOL
     Indication: INDUCTION OF ANAESTHESIA
     Dosage: 2 MILLIGRAM/KILOGRAM, TOTAL
     Route: 042
     Dates: start: 20190222, end: 20190222
  9. BRIDION [Suspect]
     Active Substance: SUGAMMADEX
     Indication: NEUROMUSCULAR BLOCKADE REVERSAL
     Dosage: 2 MILLIGRAM/KILOGRAM
     Route: 042
     Dates: start: 20190222, end: 20190222
  10. ROCURONIUM BROMIDE. [Suspect]
     Active Substance: ROCURONIUM BROMIDE
     Indication: INDUCTION OF ANAESTHESIA
     Dosage: 0.6 MILLIGRAM/KILOGRAM
     Route: 042
     Dates: start: 20190222, end: 20190222
  11. REMIFENTANIL HYDROCHLORIDE. [Concomitant]
     Active Substance: REMIFENTANIL HYDROCHLORIDE
     Indication: INDUCTION OF ANAESTHESIA
     Dosage: 0.13 MICROGRAM/KILOGRAM, 1 MIN., 0.25?0.125 MCG/KG/MIN
     Route: 042
     Dates: start: 20190222, end: 20190222
  12. REMIFENTANIL HYDROCHLORIDE. [Concomitant]
     Active Substance: REMIFENTANIL HYDROCHLORIDE
     Indication: GENERAL ANAESTHESIA
     Dosage: 0.25-0.125MCG/KG/MIN; ROUTE OF ADMINISTRATION: (EV)
     Route: 042
     Dates: start: 20190222, end: 20190222

REACTIONS (4)
  - Pulmonary alveolar haemorrhage [Recovered/Resolved]
  - Acute respiratory failure [Recovered/Resolved]
  - Respiratory failure [Recovered/Resolved]
  - Haemoptysis [Recovered/Resolved]

NARRATIVE: CASE EVENT DATE: 20190222
